FAERS Safety Report 5750091-0 (Version None)
Quarter: 2008Q2

REPORT INFORMATION
  Report Type: 
  Country: None (occurrence: None)
  Receive Date: 20080527
  Receipt Date: 20080515
  Transmission Date: 20081010
  Serious: Yes (Death, Life-Threatening, Hospitalization)
  Sender: FDA-Public Use
  Company Number: DE-PFIZER INC-2006079793

PATIENT
  Sex: Male
  Weight: 90.5 kg

DRUGS (17)
  1. SU-011,248 [Suspect]
     Indication: METASTATIC RENAL CELL CARCINOMA
     Route: 048
     Dates: start: 20060331, end: 20060606
  2. RANEZIDE [Concomitant]
     Dosage: TEXT:300/12,5
     Route: 048
     Dates: start: 20010101, end: 20060703
  3. BELOC [Concomitant]
     Dosage: TEXT:2 DE 95
     Route: 048
     Dates: start: 20050101
  4. RANITIDINE [Concomitant]
     Dosage: TEXT:150
     Route: 048
     Dates: start: 20060622, end: 20060628
  5. NEPHROTRANS [Concomitant]
     Route: 048
     Dates: start: 20060622
  6. ACTRAPID INSULIN NOVO [Concomitant]
     Route: 058
     Dates: start: 20060622, end: 20060703
  7. ACTRAPID INSULIN NOVO [Concomitant]
     Dosage: FREQ:UNKNOWN
     Route: 042
     Dates: start: 20060622, end: 20060703
  8. DICLAC [Concomitant]
     Dosage: TEXT:75
     Route: 048
     Dates: start: 20060201, end: 20060601
  9. RED BLOOD CELLS [Concomitant]
     Route: 042
     Dates: start: 20060622, end: 20060629
  10. GLUCOBAY [Concomitant]
     Dosage: TEXT:50
     Route: 048
     Dates: start: 20010101, end: 20060622
  11. OMEPRAZOLE [Concomitant]
     Route: 042
     Dates: start: 20060628, end: 20060704
  12. PROTAPHAN [Concomitant]
     Route: 058
     Dates: start: 20060623, end: 20060703
  13. CLAFORAN [Concomitant]
     Route: 042
     Dates: start: 20060626, end: 20060703
  14. CIPROBAY [Concomitant]
     Route: 042
     Dates: start: 20060627, end: 20060629
  15. RELIV [Concomitant]
     Route: 048
     Dates: start: 20050101, end: 20060703
  16. LASIX [Concomitant]
     Route: 042
     Dates: start: 20060625, end: 20060627
  17. NSA [Concomitant]
     Route: 058
     Dates: start: 20060622, end: 20060627

REACTIONS (6)
  - ANAEMIA [None]
  - DISEASE PROGRESSION [None]
  - HYPERGLYCAEMIA [None]
  - HYPERKALAEMIA [None]
  - LIVER INJURY [None]
  - METASTATIC RENAL CELL CARCINOMA [None]
